FAERS Safety Report 5151148-8 (Version None)
Quarter: 2006Q4

REPORT INFORMATION
  Report Type: 
  Country: None (occurrence: None)
  Receive Date: 20061113
  Receipt Date: 20061113
  Transmission Date: 20070319
  Serious: Yes (Other)
  Sender: FDA-Public Use
  Company Number: None

PATIENT
  Age: 81 Year
  Sex: Male
  Weight: 90.7194 kg

DRUGS (11)
  1. ACTOS [Suspect]
     Indication: DIABETES MELLITUS
     Dosage: 45MG  QAM  PO
     Route: 048
     Dates: start: 20060101, end: 20061025
  2. ASPIRIN [Concomitant]
  3. COREG [Concomitant]
  4. DOXAZOSIN MESYLATE [Concomitant]
  5. GLIMEPIRIDE [Concomitant]
  6. LISINOPRIL [Concomitant]
  7. MELATONIN [Concomitant]
  8. METFORMIN [Concomitant]
  9. PROTONIX [Concomitant]
  10. TYLENOL PM [Concomitant]
  11. UNISOM [Concomitant]

REACTIONS (2)
  - OEDEMA [None]
  - WEIGHT INCREASED [None]
